FAERS Safety Report 10687769 (Version 1)
Quarter: 2014Q4

REPORT INFORMATION
  Report Type: Spontaneous
  Country: US (occurrence: None)
  Receive Date: 20141231
  Receipt Date: 20141231
  Transmission Date: 20150529
  Serious: Yes (Other)
  Sender: FDA-Public Use
  Company Number: None

PATIENT
  Age: 61 Year
  Sex: Female

DRUGS (12)
  1. SPIRIVA [Concomitant]
     Active Substance: TIOTROPIUM BROMIDE MONOHYDRATE
  2. BILBERRY [Concomitant]
     Active Substance: BILBERRY
  3. PREDNISONE. [Concomitant]
     Active Substance: PREDNISONE
  4. SOIFENACIN [Concomitant]
  5. LASIX [Concomitant]
     Active Substance: FUROSEMIDE
  6. LICORICE ROOT POWDER [Concomitant]
  7. METOPROLOL XL [Concomitant]
     Active Substance: METOPROLOL
  8. PANTOPRAZOLE [Concomitant]
     Active Substance: PANTOPRAZOLE SODIUM
  9. PEG POWDER [Concomitant]
  10. NALOXONE [Suspect]
     Active Substance: NALOXONE
     Indication: MENTAL STATUS CHANGES
     Route: 042
  11. GABAPENTIN. [Concomitant]
     Active Substance: GABAPENTIN
  12. KCL [Concomitant]
     Active Substance: POTASSIUM CHLORIDE

REACTIONS (3)
  - Rash erythematous [None]
  - Rash macular [None]
  - Urticaria [None]

NARRATIVE: CASE EVENT DATE: 20140608
